FAERS Safety Report 4274778-4 (Version None)
Quarter: 2004Q1

REPORT INFORMATION
  Report Type: 
  Country: None (occurrence: None)
  Receive Date: 20040116
  Receipt Date: 20040107
  Transmission Date: 20041129
  Serious: Yes (Hospitalization)
  Sender: FDA-Public Use
  Company Number: 2004-00010FE

PATIENT
  Age: 47 Year
  Sex: Male

DRUGS (1)
  1. MESALAZINE (MESALAZINE) [Suspect]
     Indication: COLITIS ULCERATIVE
     Dosage: 1500 MG ORALLY
     Route: 048
     Dates: start: 19980216, end: 20031210

REACTIONS (6)
  - COUGH [None]
  - HEADACHE [None]
  - NASOPHARYNGITIS [None]
  - PHARYNGOLARYNGEAL PAIN [None]
  - PRODUCTIVE COUGH [None]
  - RHABDOMYOLYSIS [None]
